FAERS Safety Report 20046405 (Version 2)
Quarter: 2021Q4

REPORT INFORMATION
  Report Type: Spontaneous
  Country: US (occurrence: None)
  Receive Date: 20211109
  Receipt Date: 20211124
  Transmission Date: 20220303
  Serious: Yes (Death)
  Sender: FDA-Public Use
  Company Number: US-ROCHE-2953400

PATIENT
  Age: 85 Year
  Sex: Female

DRUGS (3)
  1. ESBRIET [Suspect]
     Active Substance: PIRFENIDONE
     Indication: Pulmonary fibrosis
     Dosage: 1 TABLET TID FOR 7 DAYS, 2 TABLETS TID FOR DAYS THEN 3 TABLETS TID WITH FOOD THEREAFTER
     Route: 048
     Dates: start: 20210712, end: 20210804
  2. ESBRIET [Suspect]
     Active Substance: PIRFENIDONE
     Indication: Emphysema
     Route: 048
     Dates: start: 20210805
  3. OFEV [Concomitant]
     Active Substance: NINTEDANIB
     Dates: start: 20210524

REACTIONS (2)
  - Death [Fatal]
  - Off label use [Unknown]

NARRATIVE: CASE EVENT DATE: 20210928
